FAERS Safety Report 20422103 (Version 2)
Quarter: 2022Q1

REPORT INFORMATION
  Report Type: Spontaneous
  Country: US (occurrence: US)
  Receive Date: 20220203
  Receipt Date: 20220209
  Transmission Date: 20220423
  Serious: No
  Sender: FDA-Public Use
  Company Number: US-TEVA-2022-US-2002837

PATIENT
  Age: 80 Year
  Sex: Female

DRUGS (2)
  1. CLONAZEPAM [Suspect]
     Active Substance: CLONAZEPAM
     Indication: Anxiety
     Dosage: TAKING FOR THE LAST 10 YEARS/DISINTEGRATING CLONAZEPAM TABLETS
     Route: 048
  2. CLONAZEPAM [Suspect]
     Active Substance: CLONAZEPAM
     Indication: Panic disorder
     Dosage: SPLITTING THEM TAKING HALF A TABLET IN THE MORNING AND HALF A TABLET IN THE EVENING
     Route: 048
     Dates: start: 2021

REACTIONS (5)
  - Gastrooesophageal reflux disease [Unknown]
  - Dysphagia [Unknown]
  - Wrong technique in product usage process [Unknown]
  - Off label use [Unknown]
  - Anxiety [Unknown]

NARRATIVE: CASE EVENT DATE: 20210401
